FAERS Safety Report 8990947 (Version 1)
Quarter: 2012Q4

REPORT INFORMATION
  Report Type: Spontaneous
  Country: US (occurrence: None)
  Receive Date: 20121227
  Receipt Date: 20121227
  Transmission Date: 20130627
  Serious: Yes (Other)
  Sender: FDA-Public Use
  Company Number: None

PATIENT
  Sex: Male

DRUGS (6)
  1. BETASERON [Suspect]
     Indication: MS
     Dosage: titration dosing qod SC
     Route: 058
     Dates: start: 20121114, end: 20121221
  2. RANITIDINE [Concomitant]
  3. AMITRIPTYLINE [Concomitant]
  4. CYMBALTA [Concomitant]
  5. FIORICET [Concomitant]
  6. ALEVE [Concomitant]

REACTIONS (4)
  - Suicidal ideation [None]
  - Headache [None]
  - Influenza like illness [None]
  - Sleep disorder [None]
